FAERS Safety Report 8229051-6 (Version None)
Quarter: 2012Q1

REPORT INFORMATION
  Report Type: 
  Country: None (occurrence: None)
  Receive Date: 20120322
  Receipt Date: 20120313
  Transmission Date: 20120608
  Serious: Yes (Life-Threatening)
  Sender: FDA-Public Use
  Company Number: MY-MERCK-1203USA00192

PATIENT
  Age: 4 Year
  Sex: Male
  Weight: 16 kg

DRUGS (5)
  1. DURO TUSS [Concomitant]
     Indication: COUGH
     Route: 048
     Dates: start: 20120224, end: 20120227
  2. DEXCHLORPHENIRAMINE MALEATE [Concomitant]
     Indication: COUGH
     Route: 048
     Dates: start: 20120224, end: 20120227
  3. DEXCHLORPHENIRAMINE MALEATE [Concomitant]
     Indication: INFLUENZA
     Route: 048
     Dates: start: 20120224, end: 20120227
  4. SINGULAIR [Suspect]
     Indication: COUGH
     Route: 048
     Dates: start: 20120224, end: 20120227
  5. DURO TUSS [Concomitant]
     Indication: INFLUENZA
     Route: 048
     Dates: start: 20120224, end: 20120227

REACTIONS (4)
  - SWELLING FACE [None]
  - ARTHRALGIA [None]
  - GENERALISED ERYTHEMA [None]
  - PYREXIA [None]
